FAERS Safety Report 13948190 (Version 1)
Quarter: 2017Q3

REPORT INFORMATION
  Report Type: Spontaneous
  Country: US (occurrence: None)
  Receive Date: 20170907
  Receipt Date: 20170907
  Transmission Date: 20171128
  Serious: Yes (Death)
  Sender: FDA-Public Use
  Company Number: None

PATIENT
  Age: 66 Year
  Sex: Male
  Weight: 87.5 kg

DRUGS (1)
  1. AMIODARONE HCL 200MG [Suspect]
     Active Substance: AMIODARONE HYDROCHLORIDE
     Indication: ATRIAL FIBRILLATION
     Route: 048
     Dates: start: 20170112, end: 20170205

REACTIONS (5)
  - Dyspnoea [None]
  - Pulmonary alveolar haemorrhage [None]
  - Weight increased [None]
  - Therapy cessation [None]
  - International normalised ratio increased [None]

NARRATIVE: CASE EVENT DATE: 20170205
